FAERS Safety Report 17536485 (Version 1)
Quarter: 2020Q1

REPORT INFORMATION
  Report Type: Spontaneous
  Country: FR (occurrence: FR)
  Receive Date: 20200313
  Receipt Date: 20200313
  Transmission Date: 20200409
  Serious: Yes (Death, Hospitalization)
  Sender: FDA-Public Use
  Company Number: FR-TEVA-2020-FR-1199272

PATIENT
  Age: 67 Year
  Sex: Male
  Weight: 70 kg

DRUGS (15)
  1. CASPOFUNGINE OHRE PHARMA [Concomitant]
     Active Substance: CASPOFUNGIN ACETATE
  2. RITUXIMAB ((MAMMIFERE/HAMSTER/CELLULES CHO)) [Concomitant]
     Active Substance: RITUXIMAB
  3. ACICLOVIR MYLAN [Concomitant]
     Active Substance: ACYCLOVIR
  4. PREDNISONE. [Concomitant]
     Active Substance: PREDNISONE
  5. FUNGIZONE [Concomitant]
     Active Substance: AMPHOTERICIN B
  6. FLUDARABINE TEVA [Suspect]
     Active Substance: FLUDARABINE PHOSPHATE
     Indication: CHRONIC MYELOMONOCYTIC LEUKAEMIA
     Dosage: 70.5 MG
     Route: 041
     Dates: start: 20191031, end: 20191103
  7. CEFEPIME GERDA [Concomitant]
  8. PANTOPRAZOLE [Concomitant]
     Active Substance: PANTOPRAZOLE
  9. PROGRAF [Suspect]
     Active Substance: TACROLIMUS
     Indication: PROPHYLAXIS AGAINST TRANSPLANT REJECTION
     Dosage: 1.5 MG
     Route: 041
     Dates: start: 20191226
  10. VORICONAZOLE ARROW 200 MG, POUDRE POUR SOLUTION POUR PERFUSION [Suspect]
     Active Substance: VORICONAZOLE
     Indication: ANTIFUNGAL PROPHYLAXIS
     Dosage: 200 MG
     Route: 041
     Dates: start: 20200115, end: 20200120
  11. JAKAVI [Concomitant]
     Active Substance: RUXOLITINIB
  12. CITALOPRAM (BROMHYDRATE DE) [Concomitant]
     Active Substance: CITALOPRAM HYDROBROMIDE
  13. PIPERACILLIN AND TAZOBACTAM [Concomitant]
     Active Substance: PIPERACILLIN SODIUM\TAZOBACTAM SODIUM
  14. SANDOSTATINE [Concomitant]
     Active Substance: OCTREOTIDE ACETATE
  15. CYMEVAN 500 MG, LYOPHILISAT POUR USAGE PARENT?RAL (PERFUSION) [Concomitant]
     Dosage: 500 MG

REACTIONS (1)
  - Neurotoxicity [Fatal]

NARRATIVE: CASE EVENT DATE: 20200116
